FAERS Safety Report 9798783 (Version 1)
Quarter: 2014Q1

REPORT INFORMATION
  Report Type: Report from Study
  Country: LB (occurrence: LB)
  Receive Date: 20140106
  Receipt Date: 20140106
  Transmission Date: 20141002
  Serious: Yes (Hospitalization)
  Sender: FDA-Public Use
  Company Number: LB-SA-2014SA000731

PATIENT
  Sex: Male

DRUGS (5)
  1. LANTUS SOLOSTAR [Suspect]
     Indication: DIABETES MELLITUS
     Dosage: DOSE:10 UNIT(S)
     Route: 058
     Dates: start: 201310
  2. AMARYL [Concomitant]
     Indication: DIABETES MELLITUS
     Route: 048
  3. PRAXILENE [Concomitant]
     Route: 048
  4. GASTRIMUT [Concomitant]
     Route: 048
  5. DIOVAN [Concomitant]
     Route: 048

REACTIONS (1)
  - Amputation [Recovering/Resolving]
